FAERS Safety Report 21132127 (Version 1)
Quarter: 2022Q3

REPORT INFORMATION
  Report Type: Spontaneous
  Country: US (occurrence: None)
  Receive Date: 20220726
  Receipt Date: 20220726
  Transmission Date: 20221026
  Serious: Yes (Other)
  Sender: FDA-Public Use
  Company Number: None

PATIENT
  Age: 71 Year
  Sex: Male
  Weight: 80.6 kg

DRUGS (2)
  1. HEPARIN [Suspect]
     Active Substance: HEPARIN SODIUM
     Dosage: OTHER STRENGTH : 10,000 UNITS/10 ML;?
     Dates: start: 20220706
  2. HEPARIN [Concomitant]
     Active Substance: HEPARIN SODIUM
     Dosage: OTHER STRENGTH : 10,000 UNITS/ 10ML;?
     Dates: start: 20220706, end: 20220706

REACTIONS (1)
  - Coagulation time prolonged [None]

NARRATIVE: CASE EVENT DATE: 20220706
